FAERS Safety Report 6682371-9 (Version None)
Quarter: 2010Q2

REPORT INFORMATION
  Report Type: 
  Country: None (occurrence: None)
  Receive Date: 20100415
  Receipt Date: 20100406
  Transmission Date: 20101027
  Serious: Yes (Other)
  Sender: FDA-Public Use
  Company Number: US-PFIZER INC-2010020817

PATIENT
  Sex: Male

DRUGS (1)
  1. CHANTIX [Suspect]
     Indication: NICOTINE DEPENDENCE
     Dosage: 1 MG, 2X/DAY
     Route: 048
     Dates: start: 20091201, end: 20100201

REACTIONS (4)
  - DRUG DEPENDENCE [None]
  - DRUG DOSE OMISSION [None]
  - IRRITABILITY [None]
  - WITHDRAWAL SYNDROME [None]
